FAERS Safety Report 14416449 (Version 2)
Quarter: 2018Q2

REPORT INFORMATION
  Report Type: Spontaneous
  Country: IT (occurrence: IT)
  Receive Date: 20180122
  Receipt Date: 20180509
  Transmission Date: 20180711
  Serious: Yes (Hospitalization)
  Sender: FDA-Public Use
  Company Number: IT-ABBVIE-18P-083-2229789-00

PATIENT
  Age: 49 Year
  Sex: Female

DRUGS (1)
  1. DEPAKIN CHRONO [Suspect]
     Active Substance: VALPROIC ACID
     Indication: INTENTIONAL SELF-INJURY
     Dosage: EXTENDED RELEASE TABLET.
     Route: 048
     Dates: start: 20171001, end: 20171001

REACTIONS (7)
  - PCO2 decreased [Recovered/Resolved]
  - Overdose [Unknown]
  - Blood pH increased [Recovered/Resolved]
  - Blood lactic acid increased [Recovered/Resolved]
  - Intentional self-injury [Recovered/Resolved]
  - Drug abuse [Unknown]
  - Blood chloride increased [Recovered/Resolved]

NARRATIVE: CASE EVENT DATE: 20171001
